FAERS Safety Report 7464096-5 (Version None)
Quarter: 2011Q2

REPORT INFORMATION
  Report Type: 
  Country: None (occurrence: None)
  Receive Date: 20110506
  Receipt Date: 20110427
  Transmission Date: 20111010
  Serious: Yes (Hospitalization, Other)
  Sender: FDA-Public Use
  Company Number: US-ASTRAZENECA-2011SE24441

PATIENT
  Age: 85 Year
  Sex: Female

DRUGS (1)
  1. NEXIUM [Suspect]
     Route: 048

REACTIONS (13)
  - MASTECTOMY [None]
  - GASTRECTOMY [None]
  - BRAIN NEOPLASM [None]
  - GASTROOESOPHAGEAL REFLUX DISEASE [None]
  - SURGERY [None]
  - HYSTERECTOMY [None]
  - THYROIDECTOMY [None]
  - PNEUMONIA [None]
  - BALANCE DISORDER [None]
  - COUGH [None]
  - COLON CANCER [None]
  - OESOPHAGEAL NEOPLASM [None]
  - DRUG DOSE OMISSION [None]
